FAERS Safety Report 5840982-4 (Version None)
Quarter: 2008Q3

REPORT INFORMATION
  Report Type: 
  Country: None (occurrence: None)
  Receive Date: 20080811
  Receipt Date: 20080801
  Transmission Date: 20090109
  Serious: Yes (Other)
  Sender: FDA-Public Use
  Company Number: GB-ABBOTT-08P-167-0459118-00

PATIENT
  Weight: 40 kg

DRUGS (4)
  1. HUMIRA [Suspect]
     Indication: CROHN'S DISEASE
     Dates: start: 20061206
  2. HUMIRA [Suspect]
     Dates: start: 20070523
  3. HUMIRA [Suspect]
     Dates: start: 20070704, end: 20070919
  4. HUMIRA [Suspect]

REACTIONS (2)
  - PSORIASIS [None]
  - THERAPEUTIC RESPONSE DECREASED [None]
